FAERS Safety Report 6767234-2 (Version None)
Quarter: 2010Q2

REPORT INFORMATION
  Report Type: 
  Country: None (occurrence: None)
  Receive Date: 20100614
  Receipt Date: 20100609
  Transmission Date: 20101027
  Serious: Yes (Other)
  Sender: FDA-Public Use
  Company Number: US-JNJFOC-20100603392

PATIENT
  Age: 55 Year
  Sex: Male
  Weight: 89.99 kg

DRUGS (2)
  1. TYLENOL W/ CODEINE [Suspect]
     Indication: PAIN IN EXTREMITY
     Dosage: 300/30 MG
     Route: 048
  2. SILDENAFIL CITRATE [Suspect]
     Indication: ERECTILE DYSFUNCTION
     Route: 048

REACTIONS (4)
  - DRUG INEFFECTIVE [None]
  - EXPIRED DRUG ADMINISTERED [None]
  - FOOT FRACTURE [None]
  - SKIN DISCOLOURATION [None]
